FAERS Safety Report 4353735-3 (Version None)
Quarter: 2004Q2

REPORT INFORMATION
  Report Type: 
  Country: None (occurrence: None)
  Receive Date: 20040430
  Receipt Date: 20030520
  Transmission Date: 20050107
  Serious: Yes (Hospitalization)
  Sender: FDA-Public Use
  Company Number: 2003UW06545

PATIENT
  Age: 58 Year
  Sex: Male

DRUGS (4)
  1. NEXIUM [Suspect]
     Dosage: 40 MG PO
     Route: 048
     Dates: start: 20030501
  2. TOPROL-XL [Suspect]
     Dosage: 50 MG PO
     Route: 048
     Dates: start: 20030501
  3. PRAVACHOL [Concomitant]
  4. IMDUR [Concomitant]

REACTIONS (1)
  - HYPERSENSITIVITY [None]
